FAERS Safety Report 9996090 (Version 2)
Quarter: 2016Q2

REPORT INFORMATION
  Report Type: Report from Study
  Country: JP (occurrence: JP)
  Receive Date: 20140311
  Receipt Date: 20160617
  Transmission Date: 20160815
  Serious: Yes (Death, Life-Threatening, Hospitalization)
  Sender: FDA-Public Use
  Company Number: JP-SA-2014SA027600

PATIENT
  Age: 16 Year
  Sex: Female
  Weight: 45.4 kg

DRUGS (37)
  1. ALKERAN [Suspect]
     Active Substance: MELPHALAN
     Route: 065
  2. VFEND [Suspect]
     Active Substance: VORICONAZOLE
     Indication: INFECTION PROPHYLAXIS
     Route: 065
     Dates: start: 20130216, end: 20130218
  3. FUNGUARD [Concomitant]
     Active Substance: MICAFUNGIN SODIUM
     Indication: INFECTION PROPHYLAXIS
     Dates: start: 20130219, end: 20130222
  4. DALTEPARIN [Concomitant]
     Active Substance: DALTEPARIN
     Indication: THROMBOSIS PROPHYLAXIS
     Dates: start: 20130213, end: 20130305
  5. FENTANYL. [Concomitant]
     Active Substance: FENTANYL
     Indication: ACUTE LYMPHOCYTIC LEUKAEMIA
     Dates: start: 20130124, end: 20130319
  6. BUSULFEX [Suspect]
     Active Substance: BUSULFAN
     Route: 065
  7. SOL-MELCORT [Suspect]
     Active Substance: METHYLPREDNISOLONE SODIUM SUCCINATE
     Indication: PROPHYLAXIS AGAINST GRAFT VERSUS HOST DISEASE
     Route: 065
     Dates: start: 20130820, end: 20130824
  8. FINIBAX [Suspect]
     Active Substance: DORIPENEM MONOHYDRATE
     Indication: INFECTION PROPHYLAXIS
     Route: 065
     Dates: start: 20130223, end: 20130306
  9. URSO [Concomitant]
     Active Substance: URSODIOL
     Indication: PROPHYLAXIS
     Dates: start: 20120912, end: 20130823
  10. THYMOGLOBULINE [Suspect]
     Active Substance: LAPINE T-LYMPHOCYTE IMMUNE GLOBULIN
     Indication: BONE MARROW CONDITIONING REGIMEN
     Route: 042
     Dates: start: 20130218, end: 20130219
  11. PROGRAF [Suspect]
     Active Substance: TACROLIMUS\TACROLIMUS ANHYDROUS
     Indication: PROPHYLAXIS AGAINST GRAFT VERSUS HOST DISEASE
     Route: 065
     Dates: start: 20130330, end: 20130823
  12. CRAVIT [Suspect]
     Active Substance: LEVOFLOXACIN
     Indication: INFECTION PROPHYLAXIS
     Route: 065
     Dates: start: 20130716, end: 20130720
  13. CRAVIT [Suspect]
     Active Substance: LEVOFLOXACIN
     Indication: INFECTION PROPHYLAXIS
     Route: 065
     Dates: start: 20130322, end: 20130325
  14. CRAVIT [Suspect]
     Active Substance: LEVOFLOXACIN
     Indication: INFECTION PROPHYLAXIS
     Route: 065
     Dates: start: 20130705, end: 20130709
  15. LASIX [Concomitant]
     Active Substance: FUROSEMIDE
     Indication: OEDEMA
     Dates: start: 20130215, end: 20130330
  16. PREDNISOLONE. [Suspect]
     Active Substance: PREDNISOLONE
     Indication: PERICARDIAL EFFUSION
     Route: 065
     Dates: start: 20130425, end: 20130820
  17. MEROPEN [Concomitant]
     Active Substance: MEROPENEM
     Indication: INFECTION
     Dates: start: 20130215, end: 20130223
  18. GRANISETRON [Concomitant]
     Active Substance: GRANISETRON
     Indication: PROPHYLAXIS
     Dates: start: 20130329, end: 20130602
  19. FAROM [Concomitant]
     Active Substance: FAROPENEM SODIUM
     Indication: PROPHYLAXIS
     Dates: start: 20130326, end: 20130402
  20. MYCOSYST [Concomitant]
     Active Substance: FLUCONAZOLE
     Indication: PROPHYLAXIS
     Dates: start: 20130329, end: 20130603
  21. SOLU-CORTEF [Suspect]
     Active Substance: HYDROCORTISONE SODIUM SUCCINATE
     Indication: PROPHYLAXIS
     Route: 065
     Dates: start: 20130220, end: 20130220
  22. SOL-MELCORT [Suspect]
     Active Substance: METHYLPREDNISOLONE SODIUM SUCCINATE
     Indication: PROPHYLAXIS AGAINST GRAFT VERSUS HOST DISEASE
     Route: 065
     Dates: start: 20130220, end: 20130424
  23. VFEND [Suspect]
     Active Substance: VORICONAZOLE
     Indication: INFECTION PROPHYLAXIS
     Route: 065
     Dates: start: 20130222, end: 20130328
  24. ACICLOVIR [Concomitant]
     Active Substance: ACYCLOVIR
     Indication: INFECTION PROPHYLAXIS
     Dates: start: 20121009, end: 20130823
  25. KENKETU GLOVENIN [Concomitant]
     Indication: INFECTION PROPHYLAXIS
     Dates: start: 20130621, end: 20130717
  26. FLUDARA [Suspect]
     Active Substance: FLUDARABINE PHOSPHATE
     Route: 065
  27. CRAVIT [Suspect]
     Active Substance: LEVOFLOXACIN
     Indication: INFECTION PROPHYLAXIS
     Route: 065
     Dates: start: 20130624, end: 20130628
  28. VANCOMYCIN HYDROCHLORIDE. [Suspect]
     Active Substance: VANCOMYCIN HYDROCHLORIDE
     Indication: INFECTION
     Route: 065
     Dates: start: 20130210, end: 20130322
  29. VFEND [Suspect]
     Active Substance: VORICONAZOLE
     Indication: INFECTION PROPHYLAXIS
     Route: 065
     Dates: start: 20130611, end: 20130823
  30. AMIKACIN SULFATE. [Concomitant]
     Active Substance: AMIKACIN SULFATE
     Indication: INFECTION
     Dates: start: 20130215, end: 20130226
  31. BAKTAR [Concomitant]
     Active Substance: SULFAMETHOXAZOLE\TRIMETHOPRIM
     Indication: PROPHYLAXIS
     Dates: start: 20130709, end: 20130723
  32. CRAVIT [Suspect]
     Active Substance: LEVOFLOXACIN
     Indication: INFECTION PROPHYLAXIS
     Route: 065
     Dates: start: 20130524, end: 20130611
  33. PREDNISOLONE. [Suspect]
     Active Substance: PREDNISOLONE
     Indication: PROPHYLAXIS AGAINST GRAFT VERSUS HOST DISEASE
     Route: 065
     Dates: start: 20130425, end: 20130820
  34. TAKEPRON [Concomitant]
     Active Substance: LANSOPRAZOLE
     Indication: GASTRITIS PROPHYLAXIS
     Dates: start: 20121008, end: 20130823
  35. BAKTAR [Concomitant]
     Active Substance: SULFAMETHOXAZOLE\TRIMETHOPRIM
     Indication: PROPHYLAXIS
     Dates: start: 20130527, end: 20130610
  36. FOSCAVIR [Suspect]
     Active Substance: FOSCARNET SODIUM
     Indication: CYTOMEGALOVIRUS INFECTION
     Route: 065
     Dates: start: 20130319, end: 20130630
  37. GRAN [Concomitant]
     Active Substance: FILGRASTIM
     Dates: start: 20130221, end: 20130302

REACTIONS (31)
  - Epstein-Barr virus infection [Not Recovered/Not Resolved]
  - Fungal infection [Recovering/Resolving]
  - Oedema [Not Recovered/Not Resolved]
  - Epistaxis [Not Recovered/Not Resolved]
  - Neutrophil count decreased [Recovered/Resolved]
  - Viral haemorrhagic cystitis [Not Recovered/Not Resolved]
  - Gastrointestinal haemorrhage [Recovering/Resolving]
  - Pleural effusion [Not Recovered/Not Resolved]
  - Hypophagia [Recovering/Resolving]
  - Neutrophil count decreased [Recovering/Resolving]
  - Blood creatinine increased [Not Recovered/Not Resolved]
  - Nausea [Recovering/Resolving]
  - Bacterial infection [Unknown]
  - Oropharyngeal pain [Recovering/Resolving]
  - Hypocalcaemia [Recovering/Resolving]
  - Cytomegalovirus infection [Not Recovered/Not Resolved]
  - Pericardial effusion [Not Recovered/Not Resolved]
  - Arthralgia [Recovering/Resolving]
  - Bacterial infection [Unknown]
  - Venous occlusion [Not Recovered/Not Resolved]
  - Diarrhoea [Not Recovered/Not Resolved]
  - Infection [Not Recovered/Not Resolved]
  - Liver disorder [Recovering/Resolving]
  - Neutrophil count decreased [Recovering/Resolving]
  - Liver disorder [Recovering/Resolving]
  - Cough [Not Recovered/Not Resolved]
  - Graft versus host disease [Not Recovered/Not Resolved]
  - Diarrhoea [Not Recovered/Not Resolved]
  - Acute lymphocytic leukaemia [Fatal]
  - Insomnia [Not Recovered/Not Resolved]
  - Abdominal pain [Not Recovered/Not Resolved]

NARRATIVE: CASE EVENT DATE: 20130218
